FAERS Safety Report 6680936-1 (Version None)
Quarter: 2010Q2

REPORT INFORMATION
  Report Type: 
  Country: None (occurrence: None)
  Receive Date: 20100413
  Receipt Date: 20100413
  Transmission Date: 20101027
  Serious: No
  Sender: FDA-Public Use
  Company Number: None

PATIENT
  Sex: Female
  Weight: 49.8957 kg

DRUGS (1)
  1. KENALOG [Suspect]
     Indication: EPICONDYLITIS
     Dosage: 10 MG ONCE IM
     Route: 030
     Dates: start: 20091027, end: 20091027

REACTIONS (22)
  - ARTHRALGIA [None]
  - ARTHROPATHY [None]
  - CRYING [None]
  - DEFORMITY [None]
  - DEPRESSION [None]
  - DIZZINESS [None]
  - ERYTHEMA [None]
  - FEELING ABNORMAL [None]
  - HEADACHE [None]
  - HYPERAESTHESIA [None]
  - INJECTION SITE ERYTHEMA [None]
  - INJECTION SITE OEDEMA [None]
  - INJECTION SITE PAIN [None]
  - LIPOATROPHY [None]
  - MUSCULOSKELETAL PAIN [None]
  - OEDEMA PERIPHERAL [None]
  - PAIN IN EXTREMITY [None]
  - PIGMENTATION DISORDER [None]
  - PRODUCT QUALITY ISSUE [None]
  - SKIN ATROPHY [None]
  - SOFT TISSUE ATROPHY [None]
  - VERTIGO [None]
